FAERS Safety Report 8676392 (Version 2)
Quarter: 2013Q2

REPORT INFORMATION
  Report Type: Spontaneous
  Country: US (occurrence: None)
  Receive Date: 20120406
  Receipt Date: 20120705
  Transmission Date: 20140414
  Serious: Yes (Hospitalization)
  Sender: FDA-Public Use
  Company Number: US-CYPR-2012-000006

PATIENT
  Age: 48 Year
  Sex: Male
  Weight: 95.26 kg

DRUGS (5)
  1. PRASUGREL [Suspect]
     Indication: ANTIPLATELET THERAPY
     Dosage: 10 MG QD ORAL
     Route: 048
     Dates: start: 20110514, end: 20120131
  2. ASPIRIN [Suspect]
     Indication: CORONARY ARTERY DISEASE
     Dosage: 325 MG QD ORAL, 81 MG QD ORAL
     Route: 048
     Dates: start: 20100519, end: 20120131
  3. PRAVASTATIN [Concomitant]
  4. FISH [Concomitant]
  5. CYPHER STENT [Concomitant]

REACTIONS (1)
  - ANGINA UNSTABLE [None]
